FAERS Safety Report 9855267 (Version 1)
Quarter: 2013Q4

REPORT INFORMATION
  Report Type: Spontaneous
  Country: US (occurrence: None)
  Receive Date: 20131226
  Receipt Date: 20131226
  Transmission Date: 20140711
  Serious: Yes (Other)
  Sender: FDA-Public Use
  Company Number: PHEH2012US025813

PATIENT
  Age: 69 Year
  Sex: Male

DRUGS (2)
  1. AFINITOR (RAD) UNKNOWN [Suspect]
     Indication: MALIGNANT URINARY TRACT NEOPLASM
  2. AFINITOR (RAD) UNKNOWN [Suspect]
     Indication: NEOPLASM MALIGNANT

REACTIONS (1)
  - Pneumonia [None]
